FAERS Safety Report 16430875 (Version 1)
Quarter: 2019Q2

REPORT INFORMATION
  Report Type: Spontaneous
  Country: SE (occurrence: SE)
  Receive Date: 20190614
  Receipt Date: 20190614
  Transmission Date: 20190711
  Serious: Yes (Death)
  Sender: FDA-Public Use
  Company Number: SE-ASTRAZENECA-2019SE86310

PATIENT
  Age: 57 Year
  Sex: Male

DRUGS (1)
  1. TAGRISSO [Suspect]
     Active Substance: OSIMERTINIB
     Route: 048
     Dates: start: 20190426

REACTIONS (4)
  - Ascites [Unknown]
  - Constipation [Unknown]
  - Hepatic cirrhosis [Fatal]
  - Confusional state [Unknown]
